FAERS Safety Report 4517256-7 (Version None)
Quarter: 2004Q4

REPORT INFORMATION
  Report Type: 
  Country: None (occurrence: None)
  Receive Date: 20040930
  Receipt Date: 20030908
  Transmission Date: 20050328
  Serious: Yes (Other)
  Sender: FDA-Public Use
  Company Number: 2003-09-0744

PATIENT
  Sex: Male

DRUGS (3)
  1. NORMODYNE [Suspect]
     Indication: HYPERTENSION
     Dosage: 200-250 MG QD ORAL
     Route: 048
     Dates: start: 20030727, end: 20030830
  2. AVAPRO [Suspect]
     Indication: HYPERTENSION
     Dosage: ORAL
     Route: 048
     Dates: start: 20030727
  3. NORVASC [Suspect]
     Indication: HYPERTENSION
     Dosage: ORAL
     Route: 048
     Dates: start: 20030727

REACTIONS (2)
  - HEPATITIS [None]
  - HYPOTENSION [None]
